FAERS Safety Report 8967021 (Version 1)
Quarter: 2012Q4

REPORT INFORMATION
  Report Type: 
  Country: SE (occurrence: SE)
  Receive Date: 20121214
  Receipt Date: 20121214
  Transmission Date: 20130627
  Serious: Yes (Hospitalization)
  Sender: FDA-Public Use
  Company Number: SE-JNJCH-2008006856

PATIENT
  Age: 65 Year
  Sex: Male

DRUGS (2)
  1. IBUPROFEN [Suspect]
     Indication: COMMON COLD
     Dosage: UNK
  2. DIGOXIN [Concomitant]

REACTIONS (2)
  - Cardiac failure [Unknown]
  - Fluid retention [Unknown]
